FAERS Safety Report 14999455 (Version 3)
Quarter: 2019Q2

REPORT INFORMATION
  Report Type: Spontaneous
  Country: US (occurrence: US)
  Receive Date: 20180612
  Receipt Date: 20190603
  Transmission Date: 20190711
  Serious: No
  Sender: FDA-Public Use
  Company Number: US-PFIZER INC-2018237227

PATIENT
  Age: 55 Year
  Sex: Female
  Weight: 88 kg

DRUGS (5)
  1. PREMARIN [Suspect]
     Active Substance: ESTROGENS, CONJUGATED
     Indication: ATROPHIC VULVOVAGINITIS
     Dosage: 0.625 MG/G, CYCLIC (3 TIMES PER WEEK)
     Route: 067
     Dates: start: 201807
  2. PREMARIN [Suspect]
     Active Substance: ESTROGENS, CONJUGATED
     Indication: MENOPAUSE
     Dosage: UNK UNK, WEEKLY
     Route: 067
     Dates: start: 201905
  3. PREMARIN [Suspect]
     Active Substance: ESTROGENS, CONJUGATED
     Indication: PROLAPSE
  4. PREMARIN [Suspect]
     Active Substance: ESTROGENS, CONJUGATED
     Indication: COLPOCELE
  5. PREMARIN [Suspect]
     Active Substance: ESTROGENS, CONJUGATED
     Indication: PELVIC FLOOR MUSCLE WEAKNESS

REACTIONS (5)
  - Vulvovaginal mycotic infection [Unknown]
  - Menorrhagia [Unknown]
  - Feeling abnormal [Unknown]
  - Vaginal infection [Unknown]
  - Vulvovaginal discomfort [Unknown]

NARRATIVE: CASE EVENT DATE: 20180706
